FAERS Safety Report 7783188-4 (Version None)
Quarter: 2011Q3

REPORT INFORMATION
  Report Type: 
  Country: None (occurrence: None)
  Receive Date: 20110928
  Receipt Date: 20090810
  Transmission Date: 20111222
  Serious: No
  Sender: FDA-Public Use
  Company Number: US-MYLANLABS-2009S1014075

PATIENT
  Age: 86 Year
  Sex: Male
  Weight: 77.11 kg

DRUGS (2)
  1. NITRGLYCERIN TRANSDERMAL SYSTEM [Suspect]
     Indication: ANGINA PECTORIS
     Dosage: 10-12H DAILY
     Route: 062
     Dates: start: 20090427
  2. NITRGLYCERIN TRANSDERMAL SYSTEM [Suspect]
     Indication: PROPHYLAXIS
     Dosage: 10-12H DAILY
     Route: 062
     Dates: start: 20090427

REACTIONS (1)
  - ABDOMINAL PAIN [None]
